FAERS Safety Report 9791484 (Version 1)
Quarter: 2014Q1

REPORT INFORMATION
  Report Type: Spontaneous
  Country: FR (occurrence: FR)
  Receive Date: 20140101
  Receipt Date: 20140101
  Transmission Date: 20141002
  Serious: Yes (Life-Threatening, Hospitalization)
  Sender: FDA-Public Use
  Company Number: PHHY2013FR153646

PATIENT
  Age: 21 Year
  Sex: Male

DRUGS (3)
  1. LEPONEX [Suspect]
     Indication: SCHIZOPHRENIA
     Dosage: 3 DF, QD
     Route: 048
     Dates: start: 20130904, end: 20130920
  2. LEPONEX [Suspect]
     Dosage: 3 DF, QD
     Route: 048
     Dates: start: 20130922
  3. TERCIAN [Suspect]
     Indication: ANXIETY
     Dosage: 12.5 MG, QD
     Route: 048
     Dates: start: 20130904, end: 20130917

REACTIONS (5)
  - Convulsion [Recovered/Resolved]
  - Abdominal pain [Recovered/Resolved]
  - Rhabdomyolysis [Recovered/Resolved]
  - Myoclonus [Recovered/Resolved]
  - Blood creatine phosphokinase increased [Recovered/Resolved]
